FAERS Safety Report 9492260 (Version 1)
Quarter: 2013Q3

REPORT INFORMATION
  Report Type: Spontaneous
  Country: IT (occurrence: IT)
  Receive Date: 20130830
  Receipt Date: 20130830
  Transmission Date: 20140515
  Serious: Yes (Hospitalization, Other)
  Sender: FDA-Public Use
  Company Number: PHHY2013IT094503

PATIENT
  Age: 8 Year
  Sex: Female

DRUGS (1)
  1. DEFERASIROX [Suspect]
     Indication: THALASSAEMIA BETA
     Dosage: 26 MG/KG, DAY
     Route: 048

REACTIONS (11)
  - Decreased appetite [Recovered/Resolved]
  - Pyrexia [Recovered/Resolved]
  - Renal failure [Recovered/Resolved]
  - Proteinuria [Not Recovered/Not Resolved]
  - Hyperphosphaturia [Recovered/Resolved]
  - Hypercalciuria [Recovered/Resolved]
  - Aminoaciduria [Recovered/Resolved]
  - Glycosuria [Recovered/Resolved]
  - Diarrhoea [Recovered/Resolved]
  - Skin turgor decreased [Recovered/Resolved]
  - Hypertension [Recovered/Resolved]
